FAERS Safety Report 7995516-5 (Version None)
Quarter: 2011Q4

REPORT INFORMATION
  Report Type: 
  Country: None (occurrence: None)
  Receive Date: 20111220
  Receipt Date: 20111215
  Transmission Date: 20120403
  Serious: No
  Sender: FDA-Public Use
  Company Number: US-PFIZER INC-2011305844

PATIENT
  Sex: Female
  Weight: 72.56 kg

DRUGS (2)
  1. NEURONTIN [Suspect]
     Indication: PAIN
     Dosage: 300 MG, 5X/DAY
     Route: 048
     Dates: start: 19990101
  2. TEGRETOL [Concomitant]
     Dosage: UNK

REACTIONS (1)
  - DYSPEPSIA [None]
